FAERS Safety Report 19078241 (Version 1)
Quarter: 2021Q1

REPORT INFORMATION
  Report Type: Spontaneous
  Country: US (occurrence: US)
  Receive Date: 20210331
  Receipt Date: 20210331
  Transmission Date: 20210420
  Serious: Yes (Hospitalization)
  Sender: FDA-Public Use
  Company Number: None

PATIENT
  Age: 36 Year
  Sex: Female
  Weight: 82.6 kg

DRUGS (6)
  1. CYCLOPHOSPHAMIDE. [Suspect]
     Active Substance: CYCLOPHOSPHAMIDE
     Dates: end: 20210301
  2. CYTARABINE. [Suspect]
     Active Substance: CYTARABINE
     Dates: end: 20210311
  3. MERCAPTOPURINE. [Suspect]
     Active Substance: MERCAPTOPURINE
     Dates: end: 20210314
  4. METHOTREXATE. [Suspect]
     Active Substance: METHOTREXATE
     Dates: end: 20210217
  5. ONCASPAR [Suspect]
     Active Substance: PEGASPARGASE
     Dates: end: 20210315
  6. VINCRISTINE SULFATE. [Suspect]
     Active Substance: VINCRISTINE SULFATE
     Dates: end: 20210322

REACTIONS (9)
  - Dehydration [None]
  - Neutropenia [None]
  - Blood sodium decreased [None]
  - Haemoglobin decreased [None]
  - Dyspnoea [None]
  - Blood potassium decreased [None]
  - Tachycardia [None]
  - Anxiety [None]
  - Platelet count decreased [None]

NARRATIVE: CASE EVENT DATE: 20210324
